FAERS Safety Report 4515123-6 (Version None)
Quarter: 2004Q4

REPORT INFORMATION
  Report Type: 
  Country: None (occurrence: None)
  Receive Date: 20041201
  Receipt Date: 20041122
  Transmission Date: 20050328
  Serious: Yes (Hospitalization)
  Sender: FDA-Public Use
  Company Number: PHNU2004DE03945

PATIENT
  Age: 41 Year
  Sex: Female

DRUGS (2)
  1. ANTIHISTAMINES FOR SYSTEMIC USE [Concomitant]
  2. ELIDEL [Suspect]
     Indication: DERMATITIS ATOPIC
     Dosage: 1 DF, BID
     Route: 061
     Dates: start: 20040228, end: 20040310

REACTIONS (1)
  - ECZEMA [None]
